FAERS Safety Report 16822152 (Version 5)
Quarter: 2019Q4

REPORT INFORMATION
  Report Type: Spontaneous
  Country: US (occurrence: US)
  Receive Date: 20190918
  Receipt Date: 20191127
  Transmission Date: 20200122
  Serious: No
  Sender: FDA-Public Use
  Company Number: US-PFIZER INC-2019400260

PATIENT
  Age: 54 Year
  Sex: Female

DRUGS (1)
  1. XELJANZ XR [Suspect]
     Active Substance: TOFACITINIB CITRATE
     Dosage: 11 MG, UNK
     Dates: start: 201908

REACTIONS (7)
  - Condition aggravated [Unknown]
  - Influenza [Unknown]
  - Musculoskeletal stiffness [Unknown]
  - Sinus disorder [Unknown]
  - Pain in extremity [Unknown]
  - Urinary tract infection [Unknown]
  - Motor dysfunction [Unknown]

NARRATIVE: CASE EVENT DATE: 2019
